FAERS Safety Report 17048073 (Version 1)
Quarter: 2019Q4

REPORT INFORMATION
  Report Type: Spontaneous
  Country: US (occurrence: US)
  Receive Date: 20191018
  Receipt Date: 20191018
  Transmission Date: 20200122
  Serious: Yes (Hospitalization)
  Sender: FDA-Public Use
  Company Number: None

PATIENT
  Age: 61 Year
  Sex: Male
  Weight: 109 kg

DRUGS (2)
  1. ALLOPURINOL. [Suspect]
     Active Substance: ALLOPURINOL
     Route: 048
     Dates: start: 20180822, end: 20180914
  2. PIPERACILLIN/TAZOBACTAM [Suspect]
     Active Substance: PIPERACILLIN SODIUM\TAZOBACTAM SODIUM
     Indication: UPPER RESPIRATORY TRACT INFECTION
     Route: 042
     Dates: start: 20180905, end: 20180909

REACTIONS (15)
  - Rash maculo-papular [None]
  - Blood pressure systolic decreased [None]
  - Chills [None]
  - Dehydration [None]
  - Hypotension [None]
  - Sepsis [None]
  - Tachycardia [None]
  - Vomiting [None]
  - Blood urea increased [None]
  - Pyrexia [None]
  - Urticaria [None]
  - Acute kidney injury [None]
  - Rash [None]
  - Wheezing [None]
  - Pruritus [None]

NARRATIVE: CASE EVENT DATE: 20180914
